FAERS Safety Report 20799235 (Version 1)
Quarter: 2022Q2

REPORT INFORMATION
  Report Type: Spontaneous
  Country: CZ (occurrence: CZ)
  Receive Date: 20220508
  Receipt Date: 20220508
  Transmission Date: 20220721
  Serious: Yes (Other)
  Sender: FDA-Public Use
  Company Number: None

PATIENT
  Age: 70 Year
  Sex: Female
  Weight: 78 kg

DRUGS (3)
  1. IMATINIB [Suspect]
     Active Substance: IMATINIB
     Indication: Chronic myeloid leukaemia
     Dosage: 400 MILLIGRAM DAILY;
     Route: 048
     Dates: start: 20220218, end: 20220331
  2. AMLODIPINE BESYLATE\PERINDOPRIL ARGININE [Concomitant]
     Active Substance: AMLODIPINE BESYLATE\PERINDOPRIL ARGININE
     Indication: Hypertension
     Dosage: 1 TBL PER DAY
     Route: 048
     Dates: start: 2014, end: 20220401
  3. LEVOTHYROXINE SODIUM [Concomitant]
     Active Substance: LEVOTHYROXINE SODIUM
     Indication: Hypothyroidism
     Dosage: 75 MILLIGRAM DAILY;
     Route: 048
     Dates: start: 1999, end: 20220401

REACTIONS (4)
  - Neutropenia [Recovering/Resolving]
  - Oedema peripheral [Unknown]
  - Acute febrile neutrophilic dermatosis [Recovering/Resolving]
  - Skin necrosis [Unknown]

NARRATIVE: CASE EVENT DATE: 20220201
